FAERS Safety Report 13626021 (Version 1)
Quarter: 2017Q2

REPORT INFORMATION
  Report Type: Spontaneous
  Country: US (occurrence: US)
  Receive Date: 20170607
  Receipt Date: 20170607
  Transmission Date: 20170830
  Serious: Yes (Hospitalization)
  Sender: FDA-Public Use
  Company Number: None

PATIENT
  Age: 69 Year
  Sex: Male
  Weight: 79.8 kg

DRUGS (15)
  1. LACTOBACILLUS (ACIDOPHILUS PROBIOTIC) [Concomitant]
  2. PRAVACHOL [Concomitant]
     Active Substance: PRAVASTATIN SODIUM
  3. ASPIRIN. [Concomitant]
     Active Substance: ASPIRIN
  4. BISACODYL (BISACODYL) [Concomitant]
     Active Substance: BISACODYL
  5. PEMBROLIZUMAB. [Suspect]
     Active Substance: PEMBROLIZUMAB
     Route: 042
     Dates: start: 20170330, end: 20170511
  6. LENALIDOMIDE [Suspect]
     Active Substance: LENALIDOMIDE
     Route: 048
     Dates: start: 20170330, end: 20170524
  7. LASIX [Concomitant]
     Active Substance: FUROSEMIDE
  8. CEFUROXETIME (CEFTIN) [Concomitant]
  9. AMIODARONE (CORDARONE) [Concomitant]
  10. CARVEDILOL (COREG) [Concomitant]
  11. LUTEIN-ZEAXANTHIN [Concomitant]
  12. DEXAMETHASONE. [Suspect]
     Active Substance: DEXAMETHASONE
     Route: 048
     Dates: start: 20170330, end: 20170504
  13. ACYCLOVIR (ZOVIRAX) [Concomitant]
  14. CHOLECALCIFEROL (VITAMIN D) [Concomitant]
  15. MULTIPLE VITAMINS-MINERALS (OCUVITE PRESERVATION) [Concomitant]

REACTIONS (5)
  - Cough [None]
  - Pneumonia haemophilus [None]
  - Bacterial test positive [None]
  - Oxygen saturation decreased [None]
  - Dizziness [None]

NARRATIVE: CASE EVENT DATE: 20170525
